FAERS Safety Report 15811241 (Version 1)
Quarter: 2019Q1

REPORT INFORMATION
  Report Type: Report from Study
  Country: PT (occurrence: PT)
  Receive Date: 20190111
  Receipt Date: 20190111
  Transmission Date: 20190417
  Serious: Yes (Hospitalization)
  Sender: FDA-Public Use
  Company Number: PT-CELLTRION INC.-2018PT024986

PATIENT

DRUGS (20)
  1. REMSIMA [Suspect]
     Active Substance: INFLIXIMAB
     Dosage: 245 MG
     Route: 065
     Dates: start: 20170720, end: 20170720
  2. REMSIMA [Suspect]
     Active Substance: INFLIXIMAB
     Dosage: 250 MG
     Route: 065
     Dates: start: 20180320, end: 20180320
  3. REMSIMA [Suspect]
     Active Substance: INFLIXIMAB
     Dosage: 250 MG
     Route: 065
     Dates: start: 20180814, end: 20180814
  4. REMSIMA [Suspect]
     Active Substance: INFLIXIMAB
     Dosage: 250 MG
     Route: 065
     Dates: start: 20180927, end: 20180927
  5. REMSIMA [Suspect]
     Active Substance: INFLIXIMAB
     Indication: INFLAMMATORY BOWEL DISEASE
     Dosage: 250 MG
     Route: 065
     Dates: start: 20170518, end: 20170518
  6. REMSIMA [Suspect]
     Active Substance: INFLIXIMAB
     Dosage: 250 MG
     Route: 065
     Dates: start: 20170914, end: 20170914
  7. REMSIMA [Suspect]
     Active Substance: INFLIXIMAB
     Dosage: 240 MG
     Route: 065
     Dates: start: 20180206, end: 20180206
  8. ALPRAZOLAM. [Concomitant]
     Active Substance: ALPRAZOLAM
     Indication: ANXIETY
     Dosage: 1 MG, ONCE A DAY
     Route: 048
     Dates: start: 201606
  9. CETOROLAC [Concomitant]
     Active Substance: KETOROLAC TROMETHAMINE
     Indication: HEADACHE
     Dosage: 30 MG/1ML, ONCE
     Route: 042
     Dates: start: 20181028, end: 20181028
  10. IBUPROFEN. [Concomitant]
     Active Substance: IBUPROFEN
     Indication: HEADACHE
     Dosage: 600 MG, AS NEEDED
     Route: 048
     Dates: start: 20181028
  11. OXAZEPAM. [Concomitant]
     Active Substance: OXAZEPAM
     Indication: ANXIETY
     Dosage: 50 MG, ONCE A DAY
     Route: 048
     Dates: start: 201702
  12. PANTOPRAZOLE [Concomitant]
     Active Substance: PANTOPRAZOLE
     Indication: INFLAMMATORY BOWEL DISEASE
     Dosage: 20 MG, ONCE A DAY
     Route: 048
     Dates: start: 2009
  13. REMSIMA [Suspect]
     Active Substance: INFLIXIMAB
     Dosage: 500 MG
     Route: 065
     Dates: start: 20181121, end: 20181121
  14. REMSIMA [Suspect]
     Active Substance: INFLIXIMAB
     Dosage: 245 MG
     Route: 065
     Dates: start: 20171115, end: 20171115
  15. REMSIMA [Suspect]
     Active Substance: INFLIXIMAB
     Dosage: 240 MG
     Route: 065
     Dates: start: 20180515, end: 20180515
  16. ZOLMITRIPTAN. [Concomitant]
     Active Substance: ZOLMITRIPTAN
     Indication: HEADACHE
     Dosage: 2.5 MG, AS NEEDED
     Route: 048
     Dates: start: 20181028
  17. REMSIMA [Suspect]
     Active Substance: INFLIXIMAB
     Dosage: 250 MG
     Route: 065
     Dates: start: 20171228, end: 20171228
  18. REMSIMA [Suspect]
     Active Substance: INFLIXIMAB
     Dosage: 250 MG
     Route: 065
     Dates: start: 20180703, end: 20180703
  19. DIAZEPAM. [Concomitant]
     Active Substance: DIAZEPAM
     Indication: HEADACHE
     Dosage: 5 MG, ONCE
     Route: 048
     Dates: start: 20181028, end: 20181028
  20. PARACETAMOL [Concomitant]
     Active Substance: ACETAMINOPHEN
     Indication: HEADACHE
     Dosage: AS NEEDED
     Route: 048
     Dates: start: 20181028

REACTIONS (1)
  - Inflammatory bowel disease [Recovering/Resolving]

NARRATIVE: CASE EVENT DATE: 20181116
